FAERS Safety Report 8462682 (Version 2)
Quarter: 2012Q4

REPORT INFORMATION
  Report Type: 
  Country: DE (occurrence: DE)
  Receive Date: 20120316
  Receipt Date: 20121001
  Transmission Date: 20130627
  Serious: Yes (Death, Life-Threatening)
  Sender: FDA-Public Use
  Company Number: DE-RANBAXY-2012RR-53638

PATIENT
  Age: 70 Year
  Sex: Male

DRUGS (12)
  1. AMLODIPINE [Suspect]
     Indication: PRODUCT USED FOR UNKNOWN INDICATION
     Dosage: 5 mg/day
     Route: 048
     Dates: end: 20111121
  2. MIRTAZAPINE [Suspect]
     Indication: PRODUCT USED FOR UNKNOWN INDICATION
     Dosage: 45 mg, UNK
     Route: 048
     Dates: end: 20111117
  3. MIRTAZAPINE [Suspect]
     Dosage: 30 mg, UNK
     Route: 048
     Dates: start: 20111118, end: 20111121
  4. TILIDIN [Suspect]
     Indication: PRODUCT USED FOR UNKNOWN INDICATION
     Dosage: 208 mg, UNK
     Route: 048
     Dates: end: 20111121
  5. MELPERON [Suspect]
     Indication: PRODUCT USED FOR UNKNOWN INDICATION
     Dosage: 50-100 mg/day
     Route: 048
     Dates: end: 20111117
  6. DOMINAL [Suspect]
     Indication: PRODUCT USED FOR UNKNOWN INDICATION
     Dosage: 40 mg, UNK
     Route: 048
     Dates: start: 20111120, end: 20111120
  7. RISPERDAL [Suspect]
     Indication: PRODUCT USED FOR UNKNOWN INDICATION
     Dosage: 1.5 mg, UNK
     Route: 048
     Dates: end: 20111117
  8. RISPERDAL [Suspect]
     Dosage: 2 mg, UNK
     Route: 048
     Dates: start: 20111118, end: 20111121
  9. PANTOZOL [Concomitant]
     Indication: PRODUCT USED FOR UNKNOWN INDICATION
     Dosage: 20 mg, UNK
     Route: 048
     Dates: start: 20111118, end: 20111121
  10. METFORMIN [Concomitant]
     Indication: PRODUCT USED FOR UNKNOWN INDICATION
     Dosage: 1000 mg, UNK
     Route: 048
     Dates: end: 20111121
  11. JONOSTERIL [Concomitant]
     Indication: PRODUCT USED FOR UNKNOWN INDICATION
     Dosage: 1000 ml, UNK
     Route: 042
     Dates: start: 20111121, end: 20111121
  12. IBUPROFEN [Concomitant]
     Indication: PRODUCT USED FOR UNKNOWN INDICATION
     Dosage: 1200 mg, UNK
     Route: 048
     Dates: end: 20111121

REACTIONS (2)
  - Pneumonia [Fatal]
  - Hallucination, visual [Unknown]
